FAERS Safety Report 17100404 (Version 1)
Quarter: 2019Q4

REPORT INFORMATION
  Report Type: Spontaneous
  Country: ES (occurrence: ES)
  Receive Date: 20191202
  Receipt Date: 20191202
  Transmission Date: 20200122
  Serious: Yes (Other)
  Sender: FDA-Public Use
  Company Number: ES-MYLANLABS-2019M1115719

PATIENT
  Age: 81 Year
  Sex: Female

DRUGS (7)
  1. OMEPRAZOL                          /00661201/ [Concomitant]
     Active Substance: OMEPRAZOLE
     Dosage: UNK
     Route: 048
  2. ALPRAZOLAM. [Suspect]
     Active Substance: ALPRAZOLAM
     Indication: ANXIETY
     Dosage: 1 CADA 12 HORAS
     Route: 048
     Dates: start: 20051010
  3. AZOPT [Concomitant]
     Active Substance: BRINZOLAMIDE
     Dosage: UNK
     Route: 047
  4. BESITRAN [Interacting]
     Active Substance: SERTRALINE HYDROCHLORIDE
     Indication: ANXIETY
     Dosage: 1 CADA 24 HORAS
     Route: 048
     Dates: start: 20051010
  5. DUROGESIC [Interacting]
     Active Substance: FENTANYL
     Indication: OSTEOPOROSIS
     Dosage: 1 DOSAGE FORM, Q3D
     Route: 062
     Dates: start: 20190617, end: 20190620
  6. HIDROFEROL [Concomitant]
     Active Substance: CALCIFEDIOL
     Dosage: UNK
     Route: 048
  7. DUOTRAV [Concomitant]
     Active Substance: TIMOLOL MALEATE\TRAVOPROST
     Dosage: 40 MICROGRAMOS/ML + 5 MG/ML COLIRIO EN SOLUCION, 1 FRASCO DE 2,5 ML
     Route: 048

REACTIONS (3)
  - Drug interaction [Unknown]
  - Somnolence [Recovering/Resolving]
  - Confusional state [Recovering/Resolving]

NARRATIVE: CASE EVENT DATE: 201906
